FAERS Safety Report 13695144 (Version 3)
Quarter: 2018Q2

REPORT INFORMATION
  Report Type: Spontaneous
  Country: IN (occurrence: IN)
  Receive Date: 20170627
  Receipt Date: 20180423
  Transmission Date: 20180711
  Serious: Yes (Other)
  Sender: FDA-Public Use
  Company Number: IN-PFIZER INC-2017277857

PATIENT
  Age: 48 Year
  Sex: Female

DRUGS (2)
  1. CISPLATIN. [Suspect]
     Active Substance: CISPLATIN
     Indication: GALLBLADDER CANCER METASTATIC
     Dosage: 25 MG/M2, CYCLIC (OF BODY SURFACE AREA, ON DAYS 1 AND 8 AS A THREE WEEKLY CYCLE)
     Route: 042
  2. GEMCITABINE [Suspect]
     Active Substance: GEMCITABINE\GEMCITABINE HYDROCHLORIDE
     Indication: GALLBLADDER CANCER METASTATIC
     Dosage: 1000 MG/M2, CYCLIC (ON DAYS 1 AND 8 AS A THREE WEEKLY CYCLE)
     Route: 042

REACTIONS (2)
  - Neuropathy peripheral [Unknown]
  - Anaemia [Unknown]
